FAERS Safety Report 23808714 (Version 1)
Quarter: 2024Q2

REPORT INFORMATION
  Report Type: Spontaneous
  Country: JP (occurrence: JP)
  Receive Date: 20240502
  Receipt Date: 20240502
  Transmission Date: 20240716
  Serious: Yes (Other)
  Sender: FDA-Public Use
  Company Number: JP-Eisai-202401128_LEN-RCC_P_1

PATIENT
  Age: 75 Year
  Sex: Male

DRUGS (5)
  1. LENVIMA [Suspect]
     Active Substance: LENVATINIB
     Indication: Renal cell carcinoma
     Route: 048
     Dates: start: 20231113
  2. LENVIMA [Suspect]
     Active Substance: LENVATINIB
     Route: 048
     Dates: end: 20240226
  3. LENVIMA [Suspect]
     Active Substance: LENVATINIB
     Route: 048
     Dates: start: 20240311
  4. KEYTRUDA [Suspect]
     Active Substance: PEMBROLIZUMAB
     Indication: Renal cell carcinoma
     Route: 041
     Dates: start: 20231113, end: 20240226
  5. KEYTRUDA [Suspect]
     Active Substance: PEMBROLIZUMAB
     Route: 041
     Dates: start: 20240311

REACTIONS (1)
  - Hepatic function abnormal [Recovered/Resolved]

NARRATIVE: CASE EVENT DATE: 20240226
